FAERS Safety Report 8605271-3 (Version None)
Quarter: 2012Q3

REPORT INFORMATION
  Report Type: 
  Country: None (occurrence: None)
  Receive Date: 20120807
  Receipt Date: 20120727
  Transmission Date: 20120928
  Serious: Yes (Hospitalization)
  Sender: FDA-Public Use
  Company Number: UTC-020988

PATIENT
  Age: 65 Year
  Sex: Male
  Weight: 74.55 kg

DRUGS (15)
  1. DUONESB (COMBIVENT) [Concomitant]
  2. ZOCOR [Concomitant]
  3. CARVEDILOL [Concomitant]
  4. CYCLOBENZAPRINE [Concomitant]
  5. DIGOXIN [Concomitant]
  6. COUMADIN [Concomitant]
  7. CYMBALA (DULOXETINE HYDROCHLORIDE) [Concomitant]
  8. TEMAZEPAM [Concomitant]
  9. ALBUTEROL [Concomitant]
  10. OXYGEN (OXYGEN) [Concomitant]
  11. TYVASO [Suspect]
     Indication: PULMONARY ARTERIAL HYPERTENSION
  12. REQUIP [Concomitant]
  13. SPIRIVA [Concomitant]
  14. LASIX [Concomitant]
  15. DUCOSATE CALCIUM (DUCOSATE CALCIUM) [Concomitant]

REACTIONS (4)
  - DISEASE COMPLICATION [None]
  - CHRONIC OBSTRUCTIVE PULMONARY DISEASE [None]
  - HEADACHE [None]
  - OEDEMA PERIPHERAL [None]
